FAERS Safety Report 5643451-X (Version None)
Quarter: 2008Q1

REPORT INFORMATION
  Report Type: 
  Country: None (occurrence: None)
  Receive Date: 20080226
  Receipt Date: 20080212
  Transmission Date: 20080703
  Serious: Yes (Other)
  Sender: FDA-Public Use
  Company Number: GB-1165275

PATIENT
  Sex: Male

DRUGS (2)
  1. MAXIDEX OPHTHALMIC (DEXAMETHASONE) 0.1 % SUSPENSION [Suspect]
  2. VELCADE [Concomitant]

REACTIONS (1)
  - PSYCHOTIC DISORDER [None]
